FAERS Safety Report 8128833-9 (Version None)
Quarter: 2012Q1

REPORT INFORMATION
  Report Type: 
  Country: None (occurrence: None)
  Receive Date: 20120210
  Receipt Date: 20110323
  Transmission Date: 20120608
  Serious: No
  Sender: FDA-Public Use
  Company Number: US-BRISTOL-MYERS SQUIBB COMPANY-15630643

PATIENT
  Age: 62 Year
  Sex: Female
  Weight: 99 kg

DRUGS (5)
  1. ORENCIA [Suspect]
     Dates: start: 20100901
  2. SYNTHROID [Concomitant]
  3. VITAMIN D [Concomitant]
  4. FOLIC ACID [Concomitant]
  5. METHOTREXATE [Concomitant]
     Dates: start: 19950101

REACTIONS (1)
  - ALOPECIA [None]
